FAERS Safety Report 17460969 (Version 1)
Quarter: 2020Q1

REPORT INFORMATION
  Report Type: Spontaneous
  Country: US (occurrence: US)
  Receive Date: 20200226
  Receipt Date: 20200226
  Transmission Date: 20200409
  Serious: Yes (Other)
  Sender: FDA-Public Use
  Company Number: US-ABBVIE-20K-163-3289928-00

PATIENT
  Sex: Male
  Weight: 90.8 kg

DRUGS (2)
  1. SYNTHROID [Concomitant]
     Active Substance: LEVOTHYROXINE SODIUM
     Indication: PRODUCT USED FOR UNKNOWN INDICATION
  2. IMBRUVICA [Suspect]
     Active Substance: IBRUTINIB
     Indication: CHRONIC LYMPHOCYTIC LEUKAEMIA
     Dosage: 420MG
     Route: 048
     Dates: start: 20200204

REACTIONS (2)
  - Staphylococcal infection [Not Recovered/Not Resolved]
  - Spleen disorder [Unknown]

NARRATIVE: CASE EVENT DATE: 2020
